FAERS Safety Report 21389329 (Version 1)
Quarter: 2022Q3

REPORT INFORMATION
  Report Type: Spontaneous
  Country: DE (occurrence: DE)
  Receive Date: 20220929
  Receipt Date: 20220929
  Transmission Date: 20221027
  Serious: Yes (Hospitalization)
  Sender: FDA-Public Use
  Company Number: DE-ADRED-07444-03

PATIENT
  Age: 71 Year
  Sex: Male

DRUGS (3)
  1. BISOPROLOL [Suspect]
     Active Substance: BISOPROLOL
     Indication: Product used for unknown indication
     Dosage: 2.5 MILLIGRAM DAILY; 2.5 MG, 1-0-0-0
     Route: 065
  2. RISPERIDONE [Suspect]
     Active Substance: RISPERIDONE
     Indication: Product used for unknown indication
     Dosage: 6 MILLIGRAM DAILY; 3 MG, 1-0-1-0
     Route: 065
  3. OLANZAPINE [Suspect]
     Active Substance: OLANZAPINE
     Indication: Product used for unknown indication
     Dosage: 15 MILLIGRAM DAILY; 7.5 MG, 1-0-1-0
     Route: 065

REACTIONS (10)
  - Electrocardiogram abnormal [Unknown]
  - Hypotension [Unknown]
  - General physical health deterioration [Unknown]
  - Fall [Unknown]
  - Urinary hesitation [Unknown]
  - Pyrexia [Unknown]
  - Urinary tract infection [Unknown]
  - Systemic infection [Unknown]
  - Anaemia [Unknown]
  - Syncope [Unknown]
